FAERS Safety Report 20645305 (Version 1)
Quarter: 2022Q1

REPORT INFORMATION
  Report Type: Spontaneous
  Country: US (occurrence: None)
  Receive Date: 20220328
  Receipt Date: 20220328
  Transmission Date: 20220423
  Serious: Yes (Other)
  Sender: FDA-Public Use
  Company Number: None

PATIENT
  Age: 57 Year
  Sex: Male
  Weight: 73.35 kg

DRUGS (1)
  1. DEGARELIX [Suspect]
     Active Substance: DEGARELIX
     Indication: Prostate cancer
     Dates: start: 20220323

REACTIONS (5)
  - Injection site pain [None]
  - Injection site swelling [None]
  - Injection site discomfort [None]
  - Injection site erythema [None]
  - Injection site hypersensitivity [None]

NARRATIVE: CASE EVENT DATE: 20220327
